FAERS Safety Report 11138055 (Version 1)
Quarter: 2015Q2

REPORT INFORMATION
  Report Type: Report from Study
  Country: BR (occurrence: BR)
  Receive Date: 20150526
  Receipt Date: 20150526
  Transmission Date: 20150821
  Serious: Yes (Hospitalization, Other)
  Sender: FDA-Public Use
  Company Number: PHHY2015BR053878

PATIENT
  Sex: Male
  Weight: 67 kg

DRUGS (1)
  1. EXELON PATCH [Suspect]
     Active Substance: RIVASTIGMINE
     Indication: DEMENTIA ALZHEIMER^S TYPE
     Dosage: 1 PATCH (5CM2), QD (EACH 24H)
     Route: 062

REACTIONS (4)
  - Oral disorder [Unknown]
  - Pneumonia [Unknown]
  - Weight decreased [Unknown]
  - Pyrexia [Recovered/Resolved]
